FAERS Safety Report 6122350-3 (Version None)
Quarter: 2009Q1

REPORT INFORMATION
  Report Type: 
  Country: None (occurrence: None)
  Receive Date: 20090318
  Receipt Date: 20090310
  Transmission Date: 20090719
  Serious: Yes (Other)
  Sender: FDA-Public Use
  Company Number: US-ASTRAZENECA-2009UW06316

PATIENT
  Age: 62 Year
  Sex: Female
  Weight: 90.7 kg

DRUGS (7)
  1. METOPROLOL SUCCINATE [Suspect]
     Indication: CARDIAC DISORDER
     Route: 048
     Dates: start: 20061007
  2. LIPITOR [Concomitant]
     Indication: BLOOD CHOLESTEROL INCREASED
  3. LIPITOR [Concomitant]
     Indication: CARDIAC DISORDER
  4. MICARDIS [Concomitant]
     Indication: HYPERTENSION
     Dates: start: 20070101
  5. MICARDIS [Concomitant]
     Indication: CARDIAC DISORDER
     Dates: start: 20070101
  6. ASPIRIN [Concomitant]
  7. PLAVIX [Concomitant]

REACTIONS (7)
  - ALANINE AMINOTRANSFERASE INCREASED [None]
  - BLOOD ALKALINE PHOSPHATASE INCREASED [None]
  - FATIGUE [None]
  - HAEMORRHAGE [None]
  - SINUS DISORDER [None]
  - TINNITUS [None]
  - WEIGHT INCREASED [None]
